FAERS Safety Report 18682772 (Version 1)
Quarter: 2020Q4

REPORT INFORMATION
  Report Type: Spontaneous
  Country: IN (occurrence: IN)
  Receive Date: 20201230
  Receipt Date: 20201230
  Transmission Date: 20210114
  Serious: Yes (Other)
  Sender: FDA-Public Use
  Company Number: PHBS1986IN00532

PATIENT
  Sex: Male

DRUGS (4)
  1. CLOFAZIMINE [Suspect]
     Active Substance: CLOFAZIMINE
     Dosage: 100 MG, Q48H
     Route: 065
     Dates: start: 19840126
  2. DAPSONE. [Suspect]
     Active Substance: DAPSONE
     Indication: LEPROMATOUS LEPROSY
     Route: 065
     Dates: start: 19840125
  3. CLOFAZIMINE [Suspect]
     Active Substance: CLOFAZIMINE
     Indication: LEPROMATOUS LEPROSY
     Dosage: 300 MG, QD
     Route: 065
     Dates: start: 19840125
  4. RIFAMPICIN [Suspect]
     Active Substance: RIFAMPIN
     Indication: LEPROMATOUS LEPROSY
     Dosage: 600 MG
     Route: 065
     Dates: start: 19840125, end: 19840226

REACTIONS (8)
  - Hypouricaemia [Unknown]
  - Anuria [Unknown]
  - Nausea [Unknown]
  - Arthralgia [Unknown]
  - Myalgia [Unknown]
  - Pyrexia [Unknown]
  - Back pain [Unknown]
  - Blood creatine increased [Unknown]

NARRATIVE: CASE EVENT DATE: 19840226
